FAERS Safety Report 6395127-1 (Version None)
Quarter: 2009Q4

REPORT INFORMATION
  Report Type: 
  Country: None (occurrence: None)
  Receive Date: 20091009
  Receipt Date: 20090929
  Transmission Date: 20100525
  Serious: Yes (Death, Hospitalization)
  Sender: FDA-Public Use
  Company Number: GB-PFIZER INC-2009241915

PATIENT
  Age: 63 Year

DRUGS (2)
  1. CP-751,871 [Suspect]
     Indication: PROSTATE CANCER
     Dosage: 1960 MG, 3 X A WEEK
     Route: 042
     Dates: start: 20090407
  2. PREDNISOLONE AND PREDNISOLONE STEAGLATE [Suspect]
     Indication: PROSTATE CANCER
     Dosage: 5 MG, 1X/DAY
     Route: 048
     Dates: start: 20090407

REACTIONS (2)
  - DEATH [None]
  - PNEUMONIA [None]
